FAERS Safety Report 21804537 (Version 1)
Quarter: 2023Q1

REPORT INFORMATION
  Report Type: Report from Study
  Country: PH (occurrence: PH)
  Receive Date: 20230102
  Receipt Date: 20230102
  Transmission Date: 20230417
  Serious: Yes (Hospitalization, Other)
  Sender: FDA-Public Use
  Company Number: PH-JNJFOC-20221249087

PATIENT
  Age: 64 Year
  Sex: Male

DRUGS (6)
  1. IMBRUVICA [Suspect]
     Active Substance: IBRUTINIB
     Indication: Chronic lymphocytic leukaemia
     Route: 048
  2. DUOMAX [Concomitant]
     Indication: Tuberculosis
  3. CETIRIZINE [Concomitant]
     Active Substance: CETIRIZINE HYDROCHLORIDE
     Indication: Product used for unknown indication
     Route: 048
  4. LORATADINE [Concomitant]
     Active Substance: LORATADINE
     Indication: Product used for unknown indication
     Route: 048
  5. QUADMAX [Concomitant]
     Indication: Tuberculosis
     Route: 048
  6. OMEPRAZOLE [Concomitant]
     Active Substance: OMEPRAZOLE
     Indication: Product used for unknown indication
     Route: 048

REACTIONS (12)
  - Condition aggravated [Unknown]
  - Off label use [Unknown]
  - Nausea [Unknown]
  - Fungal infection [Unknown]
  - Insomnia [Unknown]
  - Haemoglobin decreased [Unknown]
  - Pneumonia fungal [Unknown]
  - Decreased appetite [Unknown]
  - Yellow skin [Not Recovered/Not Resolved]
  - Bacterial infection [Unknown]
  - Renal failure [Unknown]
  - Asthenia [Unknown]

NARRATIVE: CASE EVENT DATE: 20221220
